FAERS Safety Report 6552839-4 (Version None)
Quarter: 2010Q1

REPORT INFORMATION
  Report Type: 
  Country: None (occurrence: None)
  Receive Date: 20100121
  Receipt Date: 20100107
  Transmission Date: 20100710
  Serious: Yes (Hospitalization)
  Sender: FDA-Public Use
  Company Number: 2010AL000114

PATIENT
  Age: 76 Year
  Sex: Female
  Weight: 86.6 kg

DRUGS (5)
  1. SPIRONOLACTONE [Suspect]
     Indication: HYPERTENSION
     Dosage: 25 MG; QD;
  2. RASILEZ [Concomitant]
  3. IRBESARTAN - HYDROCHLOROTHIAZIDE [Concomitant]
  4. AMLODIPINE [Concomitant]
  5. TORSEMIDE [Concomitant]

REACTIONS (11)
  - ATRIAL FIBRILLATION [None]
  - BRADYCARDIA [None]
  - DYSPNOEA EXERTIONAL [None]
  - FATIGUE [None]
  - HAEMODIALYSIS [None]
  - HEART RATE IRREGULAR [None]
  - HYPERKALAEMIA [None]
  - HYPERTENSION [None]
  - METABOLIC ACIDOSIS [None]
  - OEDEMA PERIPHERAL [None]
  - RENAL FAILURE ACUTE [None]
